FAERS Safety Report 7801951-8 (Version None)
Quarter: 2011Q4

REPORT INFORMATION
  Report Type: 
  Country: None (occurrence: None)
  Receive Date: 20111007
  Receipt Date: 20111007
  Transmission Date: 20120403
  Serious: Yes (Life-Threatening, Hospitalization)
  Sender: FDA-Public Use
  Company Number: None

PATIENT
  Age: 86 Year
  Sex: Male
  Weight: 61.234 kg

DRUGS (3)
  1. REQUIP [Suspect]
     Dates: start: 20111001, end: 20111005
  2. RISPERIDONE [Concomitant]
  3. SINEMET [Concomitant]
     Route: 048

REACTIONS (7)
  - DRUG DISPENSING ERROR [None]
  - DEHYDRATION [None]
  - CONFUSIONAL STATE [None]
  - TREMOR [None]
  - WRONG DRUG ADMINISTERED [None]
  - MALAISE [None]
  - ASTHENIA [None]
